FAERS Safety Report 6126701-5 (Version None)
Quarter: 2009Q1

REPORT INFORMATION
  Report Type: 
  Country: None (occurrence: None)
  Receive Date: 20090320
  Receipt Date: 20090317
  Transmission Date: 20090719
  Serious: Yes (Death, Hospitalization, Other)
  Sender: FDA-Public Use
  Company Number: PHHY2008IT28331

PATIENT
  Sex: Female

DRUGS (15)
  1. METHERGINE [Suspect]
     Indication: CAESAREAN SECTION
     Dosage: 0.8 MG
     Route: 030
     Dates: start: 20080730, end: 20080730
  2. METHERGINE [Suspect]
     Route: 042
  3. SYNTOCINON [Suspect]
     Dosage: 25 I.U, E.V
     Dates: start: 20080730, end: 20080730
  4. SYNTOCINON [Suspect]
     Dosage: UNK
     Route: 042
  5. BENTELAN [Suspect]
     Indication: ANAESTHESIA
     Dosage: 4 MG E.V
     Dates: start: 20080730, end: 20080730
  6. SODIUM CHLORIDE [Suspect]
     Dosage: 2 L E.V
     Dates: start: 20080730, end: 20080730
  7. ATROPINE SULFATE [Suspect]
     Dosage: 0.5 MG E.V
     Dates: start: 20080730, end: 20080730
  8. BUPIVACAINE [Suspect]
     Dosage: 1 POSOLOGIC UNIT, HYPERBARIC SOLUTION 1%, INTRASPINAL
     Dates: start: 20080730, end: 20080730
  9. EMAGEL [Suspect]
     Dosage: 2 L, E.V (500 ML IV)
     Route: 042
     Dates: start: 20080730, end: 20080730
  10. DEXTROSE 5% [Suspect]
     Dosage: 1 L,E.V
     Dates: start: 20080730
  11. CEFAZOLIN AND DEXTROSE [Concomitant]
     Route: 042
  12. TRANEX [Concomitant]
     Dosage: 2 VIALS
     Route: 042
  13. DICLOFENAC [Concomitant]
     Route: 030
  14. CITOFOLIN [Concomitant]
     Route: 042
  15. ZANTAC [Concomitant]
     Route: 042

REACTIONS (7)
  - DEATH [None]
  - DISSEMINATED INTRAVASCULAR COAGULATION [None]
  - HYPERPYREXIA [None]
  - OLIGURIA [None]
  - PLATELET COUNT DECREASED [None]
  - POSTPARTUM HAEMORRHAGE [None]
  - THROMBOCYTOPENIA [None]
